FAERS Safety Report 14631888 (Version 1)
Quarter: 2018Q1

REPORT INFORMATION
  Report Type: Spontaneous
  Country: ES (occurrence: ES)
  Receive Date: 20180313
  Receipt Date: 20180313
  Transmission Date: 20180509
  Serious: Yes (Hospitalization)
  Sender: FDA-Public Use
  Company Number: ES-IPSEN BIOPHARMACEUTICALS, INC.-2018-03705

PATIENT
  Age: 67 Year
  Sex: Male
  Weight: 87 kg

DRUGS (10)
  1. AFLIBERCEPT [Suspect]
     Active Substance: AFLIBERCEPT
     Route: 041
     Dates: start: 20151109
  2. LIPOSOMAL IRINOTECAN [Suspect]
     Active Substance: IRINOTECAN HYDROCHLORIDE
     Indication: COLORECTAL CANCER METASTATIC
     Dosage: 365.3999939 MG
     Route: 041
     Dates: start: 20150831, end: 20150831
  3. 5-FU [Suspect]
     Active Substance: FLUOROURACIL
     Indication: COLORECTAL CANCER METASTATIC
     Route: 041
     Dates: start: 20150831, end: 20150831
  4. OMEPRAZOLE. [Concomitant]
     Active Substance: OMEPRAZOLE
     Dates: start: 20151120
  5. LIPOSOMAL IRINOTECAN [Suspect]
     Active Substance: IRINOTECAN HYDROCHLORIDE
     Indication: OFF LABEL USE
     Dosage: NOT REPORTED
     Route: 041
     Dates: start: 20151109
  6. 5-FU [Suspect]
     Active Substance: FLUOROURACIL
     Dosage: NOT REPORTED
     Route: 040
     Dates: start: 20150831, end: 20150831
  7. LEUCOVORIN. [Suspect]
     Active Substance: LEUCOVORIN
     Indication: COLORECTAL CANCER METASTATIC
     Dosage: 812 MG
     Route: 041
     Dates: start: 20150831
  8. LEUCOVORIN. [Suspect]
     Active Substance: LEUCOVORIN
     Route: 041
     Dates: start: 20151109
  9. 5-FU [Suspect]
     Active Substance: FLUOROURACIL
     Route: 041
     Dates: start: 20151109
  10. AFLIBERCEPT [Suspect]
     Active Substance: AFLIBERCEPT
     Indication: COLORECTAL CANCER METASTATIC
     Dosage: 364 MG
     Route: 041
     Dates: start: 20150831, end: 20150831

REACTIONS (4)
  - Laryngeal pain [Recovered/Resolved]
  - Fatigue [Recovered/Resolved]
  - Off label use [Unknown]
  - Diarrhoea [Recovered/Resolved]

NARRATIVE: CASE EVENT DATE: 20151116
